FAERS Safety Report 9925976 (Version 1)
Quarter: 2014Q1

REPORT INFORMATION
  Report Type: Spontaneous
  Country: US (occurrence: US)
  Receive Date: 20140226
  Receipt Date: 20140226
  Transmission Date: 20141002
  Serious: No
  Sender: FDA-Public Use
  Company Number: US-BRACCO-010070

PATIENT
  Age: 67 Year
  Sex: Female
  Weight: 91 kg

DRUGS (1)
  1. ISOVUE 300 [Suspect]
     Indication: COMPUTERISED TOMOGRAM THORAX
     Route: 042
     Dates: start: 20130814, end: 20130814

REACTIONS (1)
  - Local swelling [Not Recovered/Not Resolved]
